FAERS Safety Report 16660585 (Version 1)
Quarter: 2019Q3

REPORT INFORMATION
  Report Type: Spontaneous
  Country: BG (occurrence: BG)
  Receive Date: 20190802
  Receipt Date: 20190802
  Transmission Date: 20191004
  Serious: Yes (Life-Threatening, Hospitalization)
  Sender: FDA-Public Use
  Company Number: BG-TEVA-2019-BG-1086911

PATIENT
  Age: 35 Year
  Sex: Male

DRUGS (3)
  1. PANTOPRAZOLE - POWDER FOR SOLUTION FOR INJECTION/INFUSION [Suspect]
     Active Substance: PANTOPRAZOLE SODIUM
     Indication: BILIARY DYSKINESIA
     Dosage: ONCE A DAY
     Route: 042
  2. DEGAN 10 MG/2 ML [Concomitant]
  3. SODIUM CHLORIDE. [Concomitant]
     Active Substance: SODIUM CHLORIDE

REACTIONS (5)
  - Cyanosis [Recovered/Resolved]
  - Tremor [Recovered/Resolved]
  - Body temperature increased [Recovered/Resolved]
  - Bronchospasm [Recovered/Resolved]
  - Anaphylactic reaction [Recovered/Resolved]

NARRATIVE: CASE EVENT DATE: 20190703
